FAERS Safety Report 6766319-4 (Version None)
Quarter: 2010Q2

REPORT INFORMATION
  Report Type: 
  Country: None (occurrence: None)
  Receive Date: 20100611
  Receipt Date: 20100604
  Transmission Date: 20101027
  Serious: Yes (Hospitalization)
  Sender: FDA-Public Use
  Company Number: US-SANOFI-AVENTIS-2010SA032784

PATIENT
  Age: 82 Year
  Sex: Male

DRUGS (11)
  1. MULTAQ [Suspect]
     Indication: ATRIAL FIBRILLATION
     Route: 048
     Dates: start: 20100511, end: 20100512
  2. COREG [Concomitant]
  3. ATACAND [Concomitant]
  4. SIMVASTATIN [Concomitant]
  5. LASIX [Concomitant]
  6. COUMADIN [Concomitant]
  7. ASPIRIN [Concomitant]
  8. MULTI-VITAMINS [Concomitant]
  9. VITAMIN B COMPLEX CAP [Concomitant]
  10. CYANOCOBALAMIN [Concomitant]
  11. L-CARNITINE [Concomitant]

REACTIONS (3)
  - DYSPNOEA [None]
  - HALLUCINATION [None]
  - INCOHERENT [None]
